FAERS Safety Report 5470534-X (Version None)
Quarter: 2007Q3

REPORT INFORMATION
  Report Type: 
  Country: None (occurrence: None)
  Receive Date: 20070927
  Receipt Date: 20070927
  Transmission Date: 20080115
  Serious: Yes (Other)
  Sender: FDA-Public Use
  Company Number: None

PATIENT
  Age: 71 Year
  Sex: Female
  Weight: 83.9154 kg

DRUGS (1)
  1. HYZAAR [Suspect]
     Indication: HYPERTENSION
     Dosage: ONE DOSE DAILY PO
     Route: 048
     Dates: start: 19950101, end: 20070921

REACTIONS (11)
  - ABDOMINAL PAIN UPPER [None]
  - ALOPECIA [None]
  - ANOREXIA [None]
  - DEMENTIA ALZHEIMER'S TYPE [None]
  - DIZZINESS [None]
  - HEADACHE [None]
  - MUSCULAR WEAKNESS [None]
  - PHARYNGOLARYNGEAL PAIN [None]
  - PYREXIA [None]
  - THIRST [None]
  - WRONG DRUG ADMINISTERED [None]
